FAERS Safety Report 9958607 (Version 1)
Quarter: 2014Q1

REPORT INFORMATION
  Report Type: Spontaneous
  Country: US (occurrence: None)
  Receive Date: 20140124
  Receipt Date: 20140124
  Transmission Date: 20141002
  Serious: Yes (Life-Threatening, Hospitalization)
  Sender: FDA-Public Use
  Company Number: 2011AP001768

PATIENT
  Age: 62 Year
  Sex: Male

DRUGS (1)
  1. METFORMIN HCL TABLETS [Suspect]
     Indication: TYPE 2 DIABETES MELLITUS

REACTIONS (1)
  - Lactic acidosis [None]
